FAERS Safety Report 7296545-X (Version None)
Quarter: 2011Q1

REPORT INFORMATION
  Report Type: 
  Country: None (occurrence: None)
  Receive Date: 20110216
  Receipt Date: 20110204
  Transmission Date: 20110831
  Serious: Yes (Other)
  Sender: FDA-Public Use
  Company Number: PHHY2011AT01609

PATIENT
  Age: 75 Year
  Sex: Female

DRUGS (3)
  1. SIMVASTATIN [Concomitant]
     Indication: HYPERCHOLESTEROLAEMIA
     Dosage: UNK
  2. ENALAPRIL [Concomitant]
     Indication: HYPERTENSION
  3. CGS 20267 [Suspect]
     Dosage: UNK
     Dates: start: 20091216

REACTIONS (1)
  - BLOOD PRESSURE DECREASED [None]
